FAERS Safety Report 10881842 (Version 1)
Quarter: 2015Q1

REPORT INFORMATION
  Report Type: Spontaneous
  Country: US (occurrence: None)
  Receive Date: 20150227
  Receipt Date: 20150227
  Transmission Date: 20150721
  Serious: Yes (Death)
  Sender: FDA-Public Use
  Company Number: None

PATIENT
  Age: 81 Year
  Sex: Female
  Weight: 45.36 kg

DRUGS (1)
  1. PROACTIV [Suspect]
     Active Substance: BENZOYL PEROXIDE

REACTIONS (4)
  - Chills [None]
  - Cerebrovascular accident [None]
  - Abasia [None]
  - Dehydration [None]

NARRATIVE: CASE EVENT DATE: 20141106
